FAERS Safety Report 7732965-4 (Version None)
Quarter: 2011Q3

REPORT INFORMATION
  Report Type: 
  Country: None (occurrence: None)
  Receive Date: 20110907
  Receipt Date: 20110901
  Transmission Date: 20111222
  Serious: Yes (Other)
  Sender: FDA-Public Use
  Company Number: DK-PFIZER INC-2011204910

PATIENT
  Age: 41 Year
  Sex: Female
  Weight: 73 kg

DRUGS (4)
  1. LYRICA [Suspect]
     Indication: GENERALISED ANXIETY DISORDER
     Dosage: 150 MG, 2X/DAY
     Dates: start: 20090630
  2. LYRICA [Suspect]
     Dosage: 75 MG, 2X/DAY
  3. SOLIAN [Concomitant]
     Indication: ANXIETY
     Dates: start: 20060801
  4. VENLAFAXINE [Concomitant]
     Indication: ANXIETY
     Dates: start: 19970301

REACTIONS (2)
  - PSORIASIS [None]
  - ECZEMA [None]
